FAERS Safety Report 8366097-1 (Version None)
Quarter: 2012Q2

REPORT INFORMATION
  Report Type: 
  Country: None (occurrence: None)
  Receive Date: 20120517
  Receipt Date: 20120511
  Transmission Date: 20120825
  Serious: Yes (Other)
  Sender: FDA-Public Use
  Company Number: US-AMGEN-USASP2012021117

PATIENT
  Age: 50 Year
  Sex: Female
  Weight: 87 kg

DRUGS (1)
  1. ENBREL [Suspect]
     Indication: RHEUMATOID ARTHRITIS
     Dosage: 50 MG, QWK
     Route: 058
     Dates: start: 20120306, end: 20120423

REACTIONS (12)
  - ARTHRALGIA [None]
  - ARTHRITIS [None]
  - BEDRIDDEN [None]
  - NAUSEA [None]
  - MIGRAINE [None]
  - VOMITING [None]
  - BLOOD GLUCOSE ABNORMAL [None]
  - PYREXIA [None]
  - CHEST PAIN [None]
  - SCOLIOSIS [None]
  - OXYGEN SATURATION ABNORMAL [None]
  - DYSPEPSIA [None]
